FAERS Safety Report 20063592 (Version 5)
Quarter: 2022Q2

REPORT INFORMATION
  Report Type: Report from Study
  Country: TH (occurrence: TH)
  Receive Date: 20211112
  Receipt Date: 20220406
  Transmission Date: 20220721
  Serious: Yes (Hospitalization, Other)
  Sender: FDA-Public Use
  Company Number: TH-NOVARTISPH-PHHO2018TH011366

PATIENT
  Age: 13 Year
  Sex: Female
  Weight: 35 kg

DRUGS (2)
  1. EVEROLIMUS [Suspect]
     Active Substance: EVEROLIMUS
     Indication: Tuberous sclerosis complex
     Dosage: 5 TAB
     Route: 048
     Dates: start: 20170918, end: 20181009
  2. EVEROLIMUS [Suspect]
     Active Substance: EVEROLIMUS
     Indication: Seizure
     Dosage: 10 MG, QD
     Route: 048
     Dates: start: 20181017

REACTIONS (3)
  - Hordeolum [Recovered/Resolved]
  - Hypokalaemia [Recovered/Resolved]
  - Seizure cluster [Recovered/Resolved]

NARRATIVE: CASE EVENT DATE: 20181013
